FAERS Safety Report 5002124-7 (Version None)
Quarter: 2006Q2

REPORT INFORMATION
  Report Type: 
  Country: None (occurrence: None)
  Receive Date: 20060515
  Receipt Date: 20060502
  Transmission Date: 20061013
  Serious: Yes (Other)
  Sender: FDA-Public Use
  Company Number: BE-ROCHE-447209

PATIENT
  Age: 56 Year
  Sex: Female

DRUGS (1)
  1. CELLCEPT [Suspect]
     Indication: EATON-LAMBERT SYNDROME
     Route: 048
     Dates: start: 20060115, end: 20060309

REACTIONS (3)
  - CELLULITIS [None]
  - COLITIS [None]
  - PANNICULITIS [None]
